FAERS Safety Report 7285517-7 (Version None)
Quarter: 2011Q1

REPORT INFORMATION
  Report Type: 
  Country: None (occurrence: None)
  Receive Date: 20110121
  Receipt Date: 20070418
  Transmission Date: 20110831
  Serious: No
  Sender: FDA-Public Use
  Company Number: 119

PATIENT
  Sex: Male

DRUGS (5)
  1. TEGRETOL [Concomitant]
  2. FAZACLO ODT [Suspect]
     Indication: SCHIZOAFFECTIVE DISORDER
     Dosage: 300 MG PO DAILY
     Route: 048
     Dates: start: 20070329, end: 20070418
  3. GLUCOPHAGE [Concomitant]
  4. ASPIRIN [Concomitant]
  5. INSULIN [Concomitant]

REACTIONS (1)
  - ELECTROCARDIOGRAM ST SEGMENT DEPRESSION [None]
